FAERS Safety Report 18700610 (Version 2)
Quarter: 2021Q1

REPORT INFORMATION
  Report Type: Report from Study
  Country: US (occurrence: US)
  Receive Date: 20210105
  Receipt Date: 20210112
  Transmission Date: 20210419
  Serious: No
  Sender: FDA-Public Use
  Company Number: NVSC2020US344999

PATIENT
  Age: 68 Year

DRUGS (2)
  1. ZORTRESS [Suspect]
     Active Substance: EVEROLIMUS
     Dosage: 0.5 MG, BID (6 TABS BID)
     Route: 048
     Dates: end: 20201127
  2. ZORTRESS [Suspect]
     Active Substance: EVEROLIMUS
     Indication: PERIPHERAL SWELLING
     Dosage: 0.5 MG, BID (4 TABS BID)
     Route: 048
     Dates: start: 20200820

REACTIONS (2)
  - Product use in unapproved indication [Unknown]
  - Peripheral swelling [Recovering/Resolving]

NARRATIVE: CASE EVENT DATE: 20201125
